FAERS Safety Report 8187242-7 (Version None)
Quarter: 2012Q1

REPORT INFORMATION
  Report Type: 
  Country: None (occurrence: None)
  Receive Date: 20120306
  Receipt Date: 20120228
  Transmission Date: 20120608
  Serious: Yes (Hospitalization)
  Sender: FDA-Public Use
  Company Number: FR-SANOFI-AVENTIS-2012SA013409

PATIENT
  Age: 70 Year
  Sex: Male

DRUGS (10)
  1. RABEPRAZOLE SODIUM [Suspect]
     Dosage: 1-0-0.
     Route: 048
  2. RISPERDAL [Suspect]
     Indication: AGITATION
     Dosage: 0.5-0-0.5.
     Route: 048
  3. XANAX [Suspect]
     Indication: ANXIETY
     Route: 048
     Dates: end: 20111229
  4. EXELON [Suspect]
     Dosage: DOSE PROGRESSIVELY INCREASED UP TO 4.5 MG 2X/DAY. 1-0-1.
     Route: 048
     Dates: start: 20100329, end: 20111229
  5. ATARAX [Suspect]
     Indication: ANXIETY
     Dosage: DOSE REDUCED ON 26-JAN-2012.
     Route: 048
     Dates: start: 20111220
  6. EQUANIL [Suspect]
     Route: 048
     Dates: start: 20111128, end: 20120110
  7. ALFUZOSIN HCL [Suspect]
     Indication: BENIGN PROSTATIC HYPERPLASIA
     Route: 048
  8. EQUANIL [Suspect]
     Indication: ANXIETY
     Route: 048
     Dates: start: 20100329, end: 20111127
  9. MODOPAR [Suspect]
     Dosage: 100 MG/ 25 MG. 2-2-1.
     Route: 048
  10. COZAAR [Suspect]
     Route: 048

REACTIONS (2)
  - MALAISE [None]
  - CONFUSIONAL STATE [None]
